FAERS Safety Report 21919641 (Version 1)
Quarter: 2023Q1

REPORT INFORMATION
  Report Type: Spontaneous
  Country: DE (occurrence: DE)
  Receive Date: 20230127
  Receipt Date: 20230127
  Transmission Date: 20230417
  Serious: Yes (Hospitalization, Other)
  Sender: FDA-Public Use
  Company Number: DE-002147023-NVSC2022DE290175

PATIENT
  Sex: Male
  Weight: 84 kg

DRUGS (3)
  1. ASPIRIN [Suspect]
     Active Substance: ASPIRIN
     Indication: Product used for unknown indication
     Dosage: UNK, QD, QD (0-1-0)
     Route: 065
  2. SIMVASTATIN [Suspect]
     Active Substance: SIMVASTATIN
     Indication: Product used for unknown indication
     Dosage: UNK, QD, QD (0-0-1)
     Route: 065
  3. HYRIMOZ [Suspect]
     Active Substance: ADALIMUMAB-ADAZ
     Indication: Psoriatic arthropathy
     Dosage: 40 MG, Q2W
     Route: 058
     Dates: start: 20190328

REACTIONS (14)
  - Large intestine polyp [Recovered/Resolved]
  - Haemorrhage [Recovered/Resolved]
  - Haemorrhoids [Unknown]
  - QRS axis abnormal [Unknown]
  - Blood creatine phosphokinase increased [Unknown]
  - Blood glucose increased [Recovered/Resolved]
  - Immunoglobulins increased [Unknown]
  - Supraventricular extrasystoles [Unknown]
  - Blood pressure increased [Unknown]
  - Abdominal distension [Unknown]
  - Diverticulum [Unknown]
  - Psoriasis [Unknown]
  - Colorectal adenoma [Unknown]
  - Platelet count decreased [Unknown]

NARRATIVE: CASE EVENT DATE: 20220124
